FAERS Safety Report 5143338-5 (Version None)
Quarter: 2006Q4

REPORT INFORMATION
  Report Type: 
  Country: None (occurrence: None)
  Receive Date: 20061103
  Receipt Date: 20061011
  Transmission Date: 20070319
  Serious: Yes (Hospitalization)
  Sender: FDA-Public Use
  Company Number: JP-PURDUE-USA_2006_0025385

PATIENT
  Age: 18 Year
  Sex: Female

DRUGS (3)
  1. CEFDITOREN PIVOXIL (SIMILAR TO NDA 21-222) [Suspect]
     Indication: HERPES VIRUS INFECTION
     Dosage: 300 MG, DAILY
     Route: 048
     Dates: start: 20061004, end: 20061005
  2. CALONAL [Concomitant]
     Indication: HERPES VIRUS INFECTION
     Dosage: 400 MG, DAILY
     Route: 048
     Dates: start: 20061004
  3. RINGEREAZE [Concomitant]
     Indication: HERPES VIRUS INFECTION
     Dosage: 180 MG, DAILY
     Route: 048
     Dates: start: 20061004, end: 20061005

REACTIONS (4)
  - DRUG ERUPTION [None]
  - GINGIVITIS [None]
  - RASH [None]
  - STOMATITIS [None]
